FAERS Safety Report 13516025 (Version 2)
Quarter: 2017Q2

REPORT INFORMATION
  Report Type: Report from Study
  Country: CZ (occurrence: CZ)
  Receive Date: 20170505
  Receipt Date: 20170509
  Transmission Date: 20170830
  Serious: Yes (Hospitalization)
  Sender: FDA-Public Use
  Company Number: CZ-ROCHE-1928545

PATIENT
  Age: 63 Year
  Sex: Male
  Weight: 73 kg

DRUGS (11)
  1. RITUXIMAB [Suspect]
     Active Substance: RITUXIMAB
     Indication: B-CELL LYMPHOMA
     Dosage: MOST RECENT DOSE: 07/FEB/2017 (671 MG) AT 12:00?STARTING DOSE AS PER PROTOCOL
     Route: 042
     Dates: start: 20160923
  2. VINCRISTINE [Suspect]
     Active Substance: VINCRISTINE
     Indication: B-CELL LYMPHOMA
     Dosage: MOST RECENT DOSE: 07/FEB/2017 (2 MG) AT 14:41?STARTING DOSE AS PER PROTOCOL
     Route: 040
     Dates: start: 20160924
  3. CARTEOLOL HYDROCHLORIDE. [Concomitant]
     Active Substance: CARTEOLOL HYDROCHLORIDE
     Indication: GLAUCOMA
  4. KALNORMIN [Concomitant]
     Active Substance: POTASSIUM CHLORIDE
     Indication: HYPOKALAEMIA
     Route: 065
     Dates: start: 20161220
  5. VENETOCLAX [Suspect]
     Active Substance: VENETOCLAX
     Indication: B-CELL LYMPHOMA
     Dosage: MOST RECENT DOSE: 29/DEC/2016 (800 MG).
     Route: 048
     Dates: start: 20160927
  6. CYCLOPHOSPHAMIDE. [Suspect]
     Active Substance: CYCLOPHOSPHAMIDE
     Indication: B-CELL LYMPHOMA
     Dosage: MOST RECENT DOSE: 07/FEB/2017 (1434 MG) 14:45?STARTING DOSE AS PER PROTOCOL
     Route: 042
     Dates: start: 20160924
  7. PREDNISONE. [Suspect]
     Active Substance: PREDNISONE
     Indication: B-CELL LYMPHOMA
     Dosage: MOST RECENT DOSE: 11/FEB/2017 (DOSE: 100 MG)?STARTING DOSE AS PER PROTOCOL
     Route: 048
     Dates: start: 20160924
  8. OMEPRAZOLUM [Concomitant]
     Indication: DYSPEPSIA
     Route: 065
     Dates: start: 20161007
  9. DOXORUBICIN [Suspect]
     Active Substance: DOXORUBICIN
     Indication: B-CELL LYMPHOMA
     Dosage: MOST RECENT DOSE: 07/FEB/2017 (90 MG) AT 15:46?STARTING DOSE AS PER PROTOCOL
     Route: 042
     Dates: start: 20160924
  10. LEVOCETIRIZINI DIHYDROCHLORIDUM [Concomitant]
     Indication: RHINITIS ALLERGIC
  11. FLUTICASONE FUROATE [Concomitant]
     Active Substance: FLUTICASONE FUROATE
     Indication: RHINITIS ALLERGIC

REACTIONS (1)
  - Central nervous system lymphoma [Not Recovered/Not Resolved]

NARRATIVE: CASE EVENT DATE: 20170427
